FAERS Safety Report 9537533 (Version 1)
Quarter: 2013Q3

REPORT INFORMATION
  Report Type: Spontaneous
  Country: CA (occurrence: CA)
  Receive Date: 20130919
  Receipt Date: 20130919
  Transmission Date: 20140515
  Serious: Yes (Hospitalization, Disabling, Other)
  Sender: FDA-Public Use
  Company Number: CA-BAYER-2013-110493

PATIENT
  Age: 53 Year
  Sex: Male
  Weight: 82 kg

DRUGS (1)
  1. AVELOX [Suspect]
     Dosage: UNK
     Route: 065

REACTIONS (25)
  - Blepharospasm [Not Recovered/Not Resolved]
  - Asthenopia [Not Recovered/Not Resolved]
  - Balance disorder [Not Recovered/Not Resolved]
  - Bone disorder [Not Recovered/Not Resolved]
  - Cyst [Not Recovered/Not Resolved]
  - Diplopia [Not Recovered/Not Resolved]
  - Dizziness [Not Recovered/Not Resolved]
  - Dysphagia [Not Recovered/Not Resolved]
  - Dysphonia [Not Recovered/Not Resolved]
  - Dyspnoea [Not Recovered/Not Resolved]
  - Ear disorder [Not Recovered/Not Resolved]
  - Fine motor delay [Not Recovered/Not Resolved]
  - Hyperacusis [Not Recovered/Not Resolved]
  - Hyperaesthesia [Not Recovered/Not Resolved]
  - Hypoaesthesia [Not Recovered/Not Resolved]
  - Influenza like illness [Not Recovered/Not Resolved]
  - Middle insomnia [Not Recovered/Not Resolved]
  - Muscle contractions involuntary [Not Recovered/Not Resolved]
  - Musculoskeletal pain [Not Recovered/Not Resolved]
  - Paraesthesia [Not Recovered/Not Resolved]
  - Photophobia [Not Recovered/Not Resolved]
  - Pruritus [Not Recovered/Not Resolved]
  - Tendonitis [Not Recovered/Not Resolved]
  - Tinnitus [Not Recovered/Not Resolved]
  - Tongue biting [Not Recovered/Not Resolved]
